FAERS Safety Report 6036924-1 (Version None)
Quarter: 2009Q1

REPORT INFORMATION
  Report Type: 
  Country: None (occurrence: None)
  Receive Date: 20090114
  Receipt Date: 20081202
  Transmission Date: 20090719
  Serious: Yes (Other)
  Sender: FDA-Public Use
  Company Number: US-PFIZER INC-2008028374

PATIENT
  Sex: Male
  Weight: 67.6 kg

DRUGS (8)
  1. XALATAN [Suspect]
     Indication: GLAUCOMA
     Route: 047
     Dates: start: 20080101
  2. XALEASE [Suspect]
     Dates: start: 20080402
  3. MULTI-VITAMINS [Concomitant]
  4. AMINO ACIDS [Concomitant]
  5. SOY LECITHIN/WHEY PROTEINS [Concomitant]
  6. ZINC [Concomitant]
  7. LUTEIN [Concomitant]
  8. ZEAXANTHIN [Concomitant]

REACTIONS (10)
  - DRUG ADMINISTRATION ERROR [None]
  - EYE IRRITATION [None]
  - EYE PRURITUS [None]
  - INTENTIONAL DRUG MISUSE [None]
  - INTRAOCULAR PRESSURE INCREASED [None]
  - PAIN [None]
  - PRURITUS [None]
  - REACTION TO PRESERVATIVES [None]
  - VISION BLURRED [None]
  - WRONG TECHNIQUE IN DRUG USAGE PROCESS [None]
